FAERS Safety Report 22594649 (Version 1)
Quarter: 2023Q2

REPORT INFORMATION
  Report Type: Spontaneous
  Country: AU (occurrence: AU)
  Receive Date: 20230613
  Receipt Date: 20230613
  Transmission Date: 20230721
  Serious: Yes (Other)
  Sender: FDA-Public Use
  Company Number: AU-GRUNENTHAL-2023-111828

PATIENT
  Sex: Male

DRUGS (1)
  1. NUCYNTA [Suspect]
     Active Substance: TAPENTADOL HYDROCHLORIDE
     Indication: Pain
     Dosage: UNK, UNKNOWN
     Route: 065

REACTIONS (6)
  - Suicidal ideation [Unknown]
  - Withdrawal syndrome [Unknown]
  - Mental disorder [Unknown]
  - General physical condition abnormal [Unknown]
  - Drug titration error [Unknown]
  - Off label use [Unknown]
